FAERS Safety Report 15129464 (Version 1)
Quarter: 2018Q3

REPORT INFORMATION
  Report Type: Spontaneous
  Country: US (occurrence: US)
  Receive Date: 20180711
  Receipt Date: 20180711
  Transmission Date: 20181010
  Serious: Yes (Hospitalization, Other)
  Sender: FDA-Public Use
  Company Number: US-WEST-WARD PHARMACEUTICALS CORP.-US-H14001-18-05616

PATIENT
  Age: 21 Year
  Sex: Female

DRUGS (6)
  1. VALPROIC ACID. [Suspect]
     Active Substance: VALPROIC ACID
     Indication: AFFECTIVE DISORDER
  2. LEVETIRACETAM. [Concomitant]
     Active Substance: LEVETIRACETAM
     Indication: AFFECTIVE DISORDER
     Dosage: ()
     Route: 065
  3. LEVETIRACETAM. [Concomitant]
     Active Substance: LEVETIRACETAM
     Indication: EPILEPSY
  4. TOPIRAMATE. [Suspect]
     Active Substance: TOPIRAMATE
     Indication: EPILEPSY
  5. VALPROIC ACID. [Suspect]
     Active Substance: VALPROIC ACID
     Indication: EPILEPSY
     Dosage: ()
     Route: 065
  6. TOPIRAMATE. [Suspect]
     Active Substance: TOPIRAMATE
     Indication: AFFECTIVE DISORDER
     Dosage: ()
     Route: 065

REACTIONS (5)
  - Underdose [Unknown]
  - Respiratory failure [Recovered/Resolved]
  - Hyperammonaemic encephalopathy [Recovered/Resolved]
  - Drug ineffective [Unknown]
  - Drug interaction [Unknown]
